FAERS Safety Report 7451860-1 (Version None)
Quarter: 2011Q2

REPORT INFORMATION
  Report Type: 
  Country: None (occurrence: None)
  Receive Date: 20110502
  Receipt Date: 20100518
  Transmission Date: 20111010
  Serious: No
  Sender: FDA-Public Use
  Company Number: US-ASTRAZENECA-2010SE22635

PATIENT
  Age: 58 Year
  Sex: Female
  Weight: 81.6 kg

DRUGS (4)
  1. SYNTHROID [Concomitant]
  2. CENESTIN [Concomitant]
  3. NEXIUM [Suspect]
     Indication: GASTROOESOPHAGEAL REFLUX DISEASE
     Route: 048
     Dates: start: 20050101
  4. TRAZODONE HCL [Concomitant]

REACTIONS (4)
  - HEAD INJURY [None]
  - ARTHRITIS [None]
  - FALL [None]
  - NERVE ROOT COMPRESSION [None]
